FAERS Safety Report 20507390 (Version 2)
Quarter: 2022Q3

REPORT INFORMATION
  Report Type: Spontaneous
  Country: LT (occurrence: LT)
  Receive Date: 20220223
  Receipt Date: 20220908
  Transmission Date: 20221027
  Serious: Yes (Life-Threatening)
  Sender: FDA-Public Use
  Company Number: LT-KRKA-LT2022K01423LIT

PATIENT
  Sex: Female
  Weight: 3.32 kg

DRUGS (3)
  1. ACYCLOVIR [Suspect]
     Active Substance: ACYCLOVIR
     Indication: Congenital herpes simplex infection
     Route: 042
  2. PENICILLIN [Concomitant]
     Active Substance: PENICILLIN
     Indication: Sepsis
     Route: 042
  3. GENTAMICIN [Concomitant]
     Active Substance: GENTAMICIN
     Indication: Sepsis

REACTIONS (1)
  - Therapy non-responder [Unknown]
